FAERS Safety Report 18235286 (Version 1)
Quarter: 2020Q3

REPORT INFORMATION
  Report Type: Spontaneous
  Country: GB (occurrence: GB)
  Receive Date: 20200904
  Receipt Date: 20200904
  Transmission Date: 20201103
  Serious: Yes (Other)
  Sender: FDA-Public Use
  Company Number: GB-AUROBINDO-AUR-APL-2020-046105

PATIENT
  Age: 40 Year
  Sex: Female

DRUGS (8)
  1. FENTANYL. [Suspect]
     Active Substance: FENTANYL
     Indication: ANALGESIC THERAPY
     Dosage: 2 MICROGRAM/MILLILITER
     Route: 065
  2. FENTANYL. [Suspect]
     Active Substance: FENTANYL
     Indication: EPIDURAL ANALGESIA
  3. OXYTOCIN. [Suspect]
     Active Substance: OXYTOCIN
     Indication: LABOUR AUGMENTATION
     Dosage: UNK
     Route: 041
  4. DIAMORPHINE [Suspect]
     Active Substance: DIAMORPHINE
     Indication: SPINAL ANAESTHESIA
     Dosage: 300 MICROGRAM
     Route: 065
  5. OXYTOCIN. [Suspect]
     Active Substance: OXYTOCIN
     Indication: LABOUR INDUCTION
  6. FENTANYL. [Suspect]
     Active Substance: FENTANYL
     Indication: SPINAL ANAESTHESIA
  7. BUPIVACAINE HYDROCHLORIDE. [Suspect]
     Active Substance: BUPIVACAINE HYDROCHLORIDE
     Indication: EPIDURAL ANALGESIA
     Dosage: 0.1 PERCENT
     Route: 065
  8. BUPIVACAINE HYDROCHLORIDE. [Suspect]
     Active Substance: BUPIVACAINE HYDROCHLORIDE
     Dosage: 2.5 MILLILITER (0.5 PERCENT)
     Route: 008

REACTIONS (3)
  - Spinal cord injury [Unknown]
  - Drug ineffective [Unknown]
  - Maternal exposure during pregnancy [Unknown]
